FAERS Safety Report 9435910 (Version 3)
Quarter: 2013Q3

REPORT INFORMATION
  Report Type: Spontaneous
  Country: US (occurrence: US)
  Receive Date: 20130801
  Receipt Date: 20130829
  Transmission Date: 20140515
  Serious: Yes (Other)
  Sender: FDA-Public Use
  Company Number: US-TEVA-421559USA

PATIENT
  Age: 36 Year
  Sex: Female

DRUGS (1)
  1. PARAGARD 380A [Suspect]
     Indication: CONTRACEPTION
     Route: 015
     Dates: start: 20081020, end: 20130724

REACTIONS (4)
  - Acinetobacter infection [Not Recovered/Not Resolved]
  - Cervical cyst [Not Recovered/Not Resolved]
  - Menometrorrhagia [Recovered/Resolved]
  - Vulval disorder [Unknown]
